FAERS Safety Report 4575435-7 (Version None)
Quarter: 2005Q1

REPORT INFORMATION
  Report Type: 
  Country: None (occurrence: None)
  Receive Date: 20050128
  Receipt Date: 20050128
  Transmission Date: 20050727
  Serious: No
  Sender: FDA-Public Use
  Company Number: None

PATIENT
  Age: 74 Year
  Sex: Male

DRUGS (2)
  1. COUMADIN [Suspect]
     Indication: INTRACARDIAC THROMBUS
     Dosage: 2 MG  1 PO QD OR AS DIRECTED
  2. .. [Concomitant]

REACTIONS (3)
  - DRUG INTOLERANCE [None]
  - INTERNATIONAL NORMALISED RATIO INCREASED [None]
  - PROTHROMBIN LEVEL ABNORMAL [None]
